FAERS Safety Report 5595662-X (Version None)
Quarter: 2007Q4

REPORT INFORMATION
  Report Type: 
  Country: None (occurrence: None)
  Receive Date: 20071218
  Receipt Date: 20070815
  Transmission Date: 20080405
  Serious: Yes (Hospitalization)
  Sender: FDA-Public Use
  Company Number: 2007067867

PATIENT
  Age: 67 Year
  Sex: Male
  Weight: 103.4 kg

DRUGS (1)
  1. BEXTRA [Suspect]
     Dosage: 10 MG (10 MG, 1 IN 1 D)

REACTIONS (2)
  - OEDEMA PERIPHERAL [None]
  - THROMBOSIS [None]
